FAERS Safety Report 9531019 (Version 1)
Quarter: 2013Q3

REPORT INFORMATION
  Report Type: Spontaneous
  Country: IL (occurrence: IL)
  Receive Date: 20130918
  Receipt Date: 20130918
  Transmission Date: 20140515
  Serious: Yes (Hospitalization)
  Sender: FDA-Public Use
  Company Number: IL-ABBVIE-13P-082-1147778-00

PATIENT
  Sex: Male

DRUGS (5)
  1. HUMIRA [Suspect]
     Indication: PSORIATIC ARTHROPATHY
     Route: 058
     Dates: start: 20130423, end: 20130808
  2. ARTHRITIS MEDICATIONS [Concomitant]
     Indication: ARTHRITIS
  3. METHOTREXATE [Concomitant]
     Indication: PRODUCT USED FOR UNKNOWN INDICATION
  4. HYPERTENSION MEDICATIONS [Concomitant]
     Indication: HYPERTENSION
  5. HEART MEDICATIONS [Concomitant]
     Indication: PRODUCT USED FOR UNKNOWN INDICATION

REACTIONS (2)
  - Dizziness [Recovered/Resolved]
  - Abdominal pain [Recovered/Resolved]
